FAERS Safety Report 11079170 (Version 1)
Quarter: 2015Q2

REPORT INFORMATION
  Report Type: Spontaneous
  Country: CH (occurrence: None)
  Receive Date: 20150428
  Receipt Date: 20150428
  Transmission Date: 20150821
  Serious: Yes (Hospitalization)
  Sender: FDA-Public Use
  Company Number: IPC201504-000225

PATIENT
  Age: 58 Year
  Sex: Male

DRUGS (16)
  1. IBUPROFEN. [Concomitant]
     Active Substance: IBUPROFEN
  2. TRAMADOL [Suspect]
     Active Substance: TRAMADOL
     Indication: PAIN
  3. OXAZEPAM. [Concomitant]
     Active Substance: OXAZEPAM
  4. BACLOFEN. [Concomitant]
     Active Substance: BACLOFEN
  5. QUETIAPINE [Concomitant]
     Active Substance: QUETIAPINE
  6. ZOLPIDEM [Concomitant]
     Active Substance: ZOLPIDEM\ZOLPIDEM TARTRATE
  7. ALFUZOSIN [Concomitant]
     Active Substance: ALFUZOSIN
  8. ACETAMINOPHEN. [Concomitant]
     Active Substance: ACETAMINOPHEN
  9. METFORMIN [Concomitant]
     Active Substance: METFORMIN HYDROCHLORIDE
  10. TRIAMCINOLONE [Suspect]
     Active Substance: TRIAMCINOLONE
     Indication: BACK PAIN
     Dosage: 40 MG, 2 INTRAMUSCULAR INJECTION, INTRAMUSCULAR
     Route: 030
  11. ALPRAZOLAM. [Concomitant]
     Active Substance: ALPRAZOLAM
  12. CANDESARTAN [Concomitant]
     Active Substance: CANDESARTAN
  13. TROSPIUM [Concomitant]
     Active Substance: TROSPIUM
  14. ESCITALOPRAM [Suspect]
     Active Substance: ESCITALOPRAM OXALATE
     Indication: DEPRESSION
  15. ATORVASTATIN [Concomitant]
     Active Substance: ATORVASTATIN
  16. TROSPIUM [Suspect]
     Active Substance: TROSPIUM

REACTIONS (4)
  - Imprisonment [None]
  - Mania [None]
  - Drug abuse [None]
  - Theft [None]
